FAERS Safety Report 4495498-7 (Version None)
Quarter: 2004Q4

REPORT INFORMATION
  Report Type: 
  Country: None (occurrence: None)
  Receive Date: 20041108
  Receipt Date: 20041102
  Transmission Date: 20050328
  Serious: Yes (Death)
  Sender: FDA-Public Use
  Company Number: US-JNJFOC-20040908714

PATIENT
  Age: 45 Year
  Sex: Female

DRUGS (4)
  1. HALDOL [Suspect]
     Indication: DRUG USE FOR UNKNOWN INDICATION
     Route: 049
  2. QUETIAPINE [Suspect]
     Indication: DRUG USE FOR UNKNOWN INDICATION
     Route: 049
  3. PHENELZINE [Suspect]
     Indication: DRUG USE FOR UNKNOWN INDICATION
     Route: 049
  4. CLONAZEPAM [Suspect]
     Indication: DRUG USE FOR UNKNOWN INDICATION

REACTIONS (5)
  - ANOXIA [None]
  - CARDIO-RESPIRATORY ARREST [None]
  - COMA [None]
  - COMPLETED SUICIDE [None]
  - MULTIPLE DRUG OVERDOSE INTENTIONAL [None]
